FAERS Safety Report 10022245 (Version 2)
Quarter: 2014Q2

REPORT INFORMATION
  Report Type: Spontaneous
  Country: JP (occurrence: JP)
  Receive Date: 20140319
  Receipt Date: 20140414
  Transmission Date: 20141212
  Serious: No
  Sender: FDA-Public Use
  Company Number: JP-ASTRAZENECA-2014SE18255

PATIENT
  Age: 90 Year
  Sex: Female

DRUGS (1)
  1. DIPRIVAN [Suspect]
     Dosage: DOSE UNKNOWN
     Route: 042

REACTIONS (1)
  - No adverse event [Unknown]
